FAERS Safety Report 6016154-X (Version None)
Quarter: 2008Q4

REPORT INFORMATION
  Report Type: 
  Country: None (occurrence: None)
  Receive Date: 20081218
  Receipt Date: 20081209
  Transmission Date: 20090506
  Serious: Yes (Death, Life-Threatening)
  Sender: FDA-Public Use
  Company Number: 004258

PATIENT
  Age: 43 Year
  Sex: Female

DRUGS (5)
  1. BUSULFEX [Suspect]
     Indication: STEM CELL TRANSPLANT
     Dosage: 22 ML INTRAVENOUS
     Route: 042
     Dates: start: 20070823, end: 20070826
  2. CYCLOPHOSPHAMIDE [Suspect]
     Dates: start: 20070827, end: 20070828
  3. VALPROATE SODIUM [Concomitant]
  4. FILGRASTIM (FILGRASTIM) [Concomitant]
  5. METHOTREXATE [Concomitant]

REACTIONS (8)
  - ACUTE GRAFT VERSUS HOST DISEASE [None]
  - ANOREXIA [None]
  - CHRONIC GRAFT VERSUS HOST DISEASE [None]
  - DIARRHOEA [None]
  - HYPONATRAEMIA [None]
  - MALAISE [None]
  - PHARYNGITIS [None]
  - STOMATITIS [None]
